FAERS Safety Report 24286805 (Version 1)
Quarter: 2024Q3

REPORT INFORMATION
  Report Type: Spontaneous
  Country: US (occurrence: None)
  Receive Date: 20240903
  Receipt Date: 20240903
  Transmission Date: 20241017
  Serious: Yes (Hospitalization)
  Sender: Public
  Company Number: None

PATIENT
  Sex: Female

DRUGS (6)
  1. OPSUMIT [Suspect]
     Active Substance: MACITENTAN
     Indication: Pulmonary arterial hypertension
     Dosage: FREQUENCY : DAILY;?
     Route: 048
     Dates: start: 202008
  2. STERILE DILUENT FOR REMODULIN [Concomitant]
  3. WINREVAIR SDV [Concomitant]
  4. PUMP CADD LEGACY [Concomitant]
  5. WINREVAIR SDV (2/KIT) [Concomitant]
  6. REMODULIN MDV [Concomitant]

REACTIONS (1)
  - Road traffic accident [None]
